FAERS Safety Report 6713392-5 (Version None)
Quarter: 2010Q2

REPORT INFORMATION
  Report Type: 
  Country: None (occurrence: None)
  Receive Date: 20100506
  Receipt Date: 20100426
  Transmission Date: 20101027
  Serious: Yes (Other)
  Sender: FDA-Public Use
  Company Number: US-TEVA-232783USA

PATIENT
  Sex: Female

DRUGS (1)
  1. QUINAPRIL TABLETS USP 5 MG, 10 MG, 20 MG AND 40 MG [Suspect]
     Route: 048

REACTIONS (1)
  - LUPUS-LIKE SYNDROME [None]
